FAERS Safety Report 9818543 (Version 5)
Quarter: 2014Q1

REPORT INFORMATION
  Report Type: Spontaneous
  Country: JP (occurrence: JP)
  Receive Date: 20140115
  Receipt Date: 20140314
  Transmission Date: 20141002
  Serious: Yes (Death, Other)
  Sender: FDA-Public Use
  Company Number: JP-PFIZER INC-2013346308

PATIENT
  Age: 78 Year
  Sex: Male
  Weight: 52 kg

DRUGS (9)
  1. INLYTA [Suspect]
     Indication: RENAL CELL CARCINOMA
     Dosage: 6 MG, 2X/DAY
     Route: 048
     Dates: start: 20131015, end: 20131029
  2. RABEPRAZOLE [Concomitant]
     Indication: HYPERTENSION
     Dosage: 10 MG, 1X/DAY
     Route: 048
     Dates: start: 20110311
  3. AZELNIDIPINE [Concomitant]
     Indication: HYPERTENSION
     Dosage: 16 MG, 1X/DAY
     Route: 048
     Dates: start: 20110311
  4. OLMETEC [Concomitant]
     Indication: HYPERTENSION
     Dosage: 20 MG, 2X/DAY
     Route: 048
     Dates: start: 20110311
  5. ARTIST [Concomitant]
     Indication: HYPERTENSION
     Dosage: 5 MG, 1X/DAY
     Route: 048
     Dates: start: 20110311
  6. THYRADIN S [Concomitant]
     Indication: HYPOTHYROIDISM
     Dosage: 50 UG, 1X/DAY
     Route: 048
     Dates: start: 20110311
  7. FUROSEMIDE [Concomitant]
     Indication: RENAL IMPAIRMENT
     Dosage: 40 MG, 2X/DAY
     Route: 048
     Dates: start: 20130109
  8. KALIMATE [Concomitant]
     Indication: RENAL IMPAIRMENT
     Dosage: 5 G, 1X/DAY
     Route: 048
     Dates: start: 20130109
  9. SODIUM BICARBONATE [Concomitant]
     Indication: RENAL IMPAIRMENT
     Dosage: 2 G, 2X/DAY
     Route: 048
     Dates: start: 20130109

REACTIONS (6)
  - Dyspnoea [Fatal]
  - Malignant pleural effusion [Fatal]
  - Disease progression [Fatal]
  - Renal cell carcinoma [Fatal]
  - Bone marrow failure [Fatal]
  - Intestinal haemorrhage [Fatal]
